FAERS Safety Report 6105765-9 (Version None)
Quarter: 2009Q1

REPORT INFORMATION
  Report Type: 
  Country: None (occurrence: None)
  Receive Date: 20090306
  Receipt Date: 20090303
  Transmission Date: 20090719
  Serious: Yes (Other)
  Sender: FDA-Public Use
  Company Number: FI-JNJFOC-20090300698

PATIENT
  Age: 16 Year
  Sex: Male

DRUGS (1)
  1. CONCERTA [Suspect]
     Indication: ATTENTION DEFICIT/HYPERACTIVITY DISORDER
     Dosage: 14 TABLETS X 54 MG
     Route: 048

REACTIONS (3)
  - INTENTIONAL OVERDOSE [None]
  - PALPITATIONS [None]
  - SUICIDE ATTEMPT [None]
